FAERS Safety Report 26168736 (Version 1)
Quarter: 2025Q4

REPORT INFORMATION
  Report Type: Spontaneous
  Country: US (occurrence: US)
  Receive Date: 20251217
  Receipt Date: 20251217
  Transmission Date: 20260118
  Serious: Yes (Hospitalization)
  Sender: DR REDDYS
  Company Number: US-DRL-USA-USA/2025/12/018656

PATIENT
  Age: 28 Year
  Sex: Male

DRUGS (2)
  1. COLCHICINE [Suspect]
     Active Substance: COLCHICINE
     Indication: Pericardial effusion
  2. FLUCONAZOLE [Suspect]
     Active Substance: FLUCONAZOLE
     Indication: Coccidioidomycosis

REACTIONS (7)
  - Drug level above therapeutic [Unknown]
  - Inhibitory drug interaction [Unknown]
  - Vomiting [Unknown]
  - Disseminated coccidioidomycosis [Unknown]
  - Weight decreased [Unknown]
  - Fall [Unknown]
  - Product use in unapproved indication [Unknown]
